FAERS Safety Report 25944011 (Version 2)
Quarter: 2025Q4

REPORT INFORMATION
  Report Type: Spontaneous
  Country: EU (occurrence: EU)
  Receive Date: 20251021
  Receipt Date: 20251104
  Transmission Date: 20260117
  Serious: Yes (Other)
  Sender: Thea Pharma
  Company Number: EU-THEA-2025002548

PATIENT
  Age: 73 Year
  Sex: Female

DRUGS (1)
  1. LATANOPROST [Suspect]
     Active Substance: LATANOPROST
     Indication: Glaucoma
     Dosage: BOTH EYES
     Route: 047
     Dates: start: 20250526, end: 20250905

REACTIONS (1)
  - Neovascular age-related macular degeneration [Not Recovered/Not Resolved]

NARRATIVE: CASE EVENT DATE: 20250905
